FAERS Safety Report 10471455 (Version 2)
Quarter: 2014Q3

REPORT INFORMATION
  Report Type: Spontaneous
  Country: VE (occurrence: VE)
  Receive Date: 20140923
  Receipt Date: 20140929
  Transmission Date: 20150326
  Serious: Yes (Death)
  Sender: FDA-Public Use
  Company Number: VE-PFIZER INC-2014259477

PATIENT
  Age: 41 Year
  Sex: Female

DRUGS (3)
  1. GLUCOFAGE [Concomitant]
     Indication: DIABETES MELLITUS
     Dosage: 1700 MG, DAILY
     Route: 048
  2. LYRICA [Suspect]
     Active Substance: PREGABALIN
     Indication: SOMNOLENCE
     Dosage: 75 MG, 2X/DAY
     Route: 048
     Dates: start: 201402, end: 201402
  3. NEURONTIN [Concomitant]
     Active Substance: GABAPENTIN
     Dosage: UNK
     Route: 048

REACTIONS (2)
  - Off label use [Fatal]
  - Renal failure [Fatal]

NARRATIVE: CASE EVENT DATE: 201402
